FAERS Safety Report 17620835 (Version 7)
Quarter: 2023Q4

REPORT INFORMATION
  Report Type: Other
  Country: DE (occurrence: None)
  Receive Date: 20200403
  Receipt Date: 20231220
  Transmission Date: 20240110
  Serious: Yes (Hospitalization)
  Sender: FDA-Public Use
  Company Number: DE-ROCHE-2572742

PATIENT
  Age: 49 Year
  Sex: Male
  Weight: 80 kg

DRUGS (17)
  1. OCREVUS [Suspect]
     Active Substance: OCRELIZUMAB
     Indication: Primary progressive multiple sclerosis
     Route: 042
     Dates: start: 20180410, end: 20180424
  2. OCREVUS [Suspect]
     Active Substance: OCRELIZUMAB
     Route: 042
     Dates: start: 20181023
  3. BACLOFEN [Concomitant]
     Active Substance: BACLOFEN
     Dosage: SPASMOLYTIC
     Route: 048
  4. ACETAMINOPHEN [Concomitant]
     Active Substance: ACETAMINOPHEN
     Indication: Premedication
     Dosage: ANALGESIC BEFORE OCREVUS ADMINISTRATION
     Route: 048
     Dates: start: 20180410, end: 20180410
  5. ACETAMINOPHEN [Concomitant]
     Active Substance: ACETAMINOPHEN
     Route: 048
     Dates: start: 20200317, end: 20200317
  6. ACETAMINOPHEN [Concomitant]
     Active Substance: ACETAMINOPHEN
     Route: 048
     Dates: start: 20180424, end: 20180424
  7. NABIXIMOLS [Concomitant]
     Active Substance: NABIXIMOLS
     Dosage: SPASMOLYTIC
     Route: 002
     Dates: start: 201605
  8. METHYLPREDNISOLONE [Concomitant]
     Active Substance: METHYLPREDNISOLONE
     Indication: Premedication
     Route: 042
     Dates: start: 20180424, end: 20180424
  9. METHYLPREDNISOLONE [Concomitant]
     Active Substance: METHYLPREDNISOLONE
     Route: 042
     Dates: start: 20200317, end: 20200317
  10. METHYLPREDNISOLONE [Concomitant]
     Active Substance: METHYLPREDNISOLONE
     Route: 042
     Dates: start: 20180410, end: 20180410
  11. ALBUTEROL [Concomitant]
     Active Substance: ALBUTEROL
     Indication: Asthma
     Route: 055
  12. PREGABALIN [Concomitant]
     Active Substance: PREGABALIN
     Indication: Pain
     Route: 048
  13. DIMETHINDENE [Concomitant]
     Active Substance: DIMETHINDENE
     Indication: Premedication
     Dosage: ANTIHISTAMINE
     Route: 042
     Dates: start: 20180410, end: 20180410
  14. DIMETHINDENE [Concomitant]
     Active Substance: DIMETHINDENE
     Route: 042
     Dates: start: 20180424, end: 20180424
  15. DIMETHINDENE [Concomitant]
     Active Substance: DIMETHINDENE
     Route: 042
     Dates: start: 20200317, end: 20200317
  16. DELIX [Concomitant]
     Dosage: ANTIHYPERTENSIVE
     Route: 048
  17. VENLAFAXINE HYDROCHLORIDE [Concomitant]
     Active Substance: VENLAFAXINE HYDROCHLORIDE
     Indication: Depression
     Route: 048
     Dates: start: 201505

REACTIONS (3)
  - Dysphagia [Recovering/Resolving]
  - Urinary tract infection [Recovered/Resolved with Sequelae]
  - Lymphopenia [Not Recovered/Not Resolved]

NARRATIVE: CASE EVENT DATE: 20190901
